FAERS Safety Report 13665616 (Version 2)
Quarter: 2017Q3

REPORT INFORMATION
  Report Type: Report from Study
  Country: US (occurrence: US)
  Receive Date: 20170619
  Receipt Date: 20170717
  Transmission Date: 20171127
  Serious: Yes (Hospitalization)
  Sender: FDA-Public Use
  Company Number: US-ROCHE-1940010

PATIENT
  Age: 76 Year
  Sex: Male
  Weight: 88.4 kg

DRUGS (16)
  1. TYLENOL [Concomitant]
     Active Substance: ACETAMINOPHEN
     Indication: CANCER PAIN
     Route: 048
     Dates: start: 201702
  2. XARELTO [Concomitant]
     Active Substance: RIVAROXABAN
     Indication: ATRIAL FIBRILLATION
     Route: 048
     Dates: start: 2011
  3. TAMSULOSIN [Concomitant]
     Active Substance: TAMSULOSIN
     Indication: BENIGN PROSTATIC HYPERPLASIA
     Route: 048
     Dates: start: 2010
  4. NORMAL SALINE [Concomitant]
     Active Substance: SODIUM CHLORIDE
     Route: 042
     Dates: start: 20170426
  5. MILK OF MAGNESIA [Concomitant]
     Active Substance: MAGNESIUM HYDROXIDE
     Indication: CONSTIPATION
     Route: 048
     Dates: start: 201702
  6. PRBC [Concomitant]
     Dosage: 1 UNIT
     Route: 042
     Dates: start: 20170517, end: 20170517
  7. HYDROMORPHONE [Concomitant]
     Active Substance: HYDROMORPHONE
     Indication: CANCER PAIN
     Dosage: 1-2 DF
     Route: 048
     Dates: start: 20170129
  8. ATEZOLIZUMAB. [Suspect]
     Active Substance: ATEZOLIZUMAB
     Indication: TRANSITIONAL CELL CARCINOMA
     Dosage: MOST RECENT DOSE PRIOR TO THE EVENTS: 16/MAY/2017
     Route: 042
     Dates: start: 20170426
  9. NORMAL SALINE [Concomitant]
     Active Substance: SODIUM CHLORIDE
     Indication: HYPOTENSION
     Route: 042
     Dates: start: 20170516, end: 20170516
  10. MAGNESIUM CITRATE. [Concomitant]
     Active Substance: MAGNESIUM CITRATE
     Indication: CONSTIPATION
     Route: 065
     Dates: start: 201702
  11. SENOKOT-S [Concomitant]
     Active Substance: DOCUSATE SODIUM\SENNOSIDES
     Indication: CONSTIPATION
     Route: 048
     Dates: start: 201702
  12. FERROUS SULFATE. [Concomitant]
     Active Substance: FERROUS SULFATE
     Indication: IRON DEFICIENCY
     Route: 048
     Dates: start: 20170505, end: 20170516
  13. FENTANYL. [Concomitant]
     Active Substance: FENTANYL
     Indication: CANCER PAIN
     Route: 062
     Dates: start: 20170403
  14. TRINTELLIX [Concomitant]
     Active Substance: VORTIOXETINE HYDROBROMIDE
     Indication: DEPRESSION
     Route: 048
     Dates: start: 2016
  15. MODAFINIL. [Concomitant]
     Active Substance: MODAFINIL
     Indication: SLEEP APNOEA SYNDROME
     Route: 048
     Dates: start: 20170424
  16. PRBC [Concomitant]
     Indication: ANAEMIA
     Dosage: 2 UNITS
     Route: 042
     Dates: start: 20170504, end: 20170504

REACTIONS (1)
  - Pneumonitis [Not Recovered/Not Resolved]

NARRATIVE: CASE EVENT DATE: 20170523
